FAERS Safety Report 7249562-X (Version None)
Quarter: 2011Q1

REPORT INFORMATION
  Report Type: 
  Country: None (occurrence: None)
  Receive Date: 20110128
  Receipt Date: 20101228
  Transmission Date: 20110831
  Serious: Yes (Other)
  Sender: FDA-Public Use
  Company Number: US-BAYER-2010-008638

PATIENT
  Sex: Female
  Weight: 91 kg

DRUGS (3)
  1. ALEVE (CAPLET) [Suspect]
     Dosage: 440/ 220 MG, BID
     Dates: start: 20101225, end: 20101227
  2. ALEVE (CAPLET) [Suspect]
     Indication: PRODUCT USED FOR UNKNOWN INDICATION
     Dosage: 220 MG, QD
     Route: 048
     Dates: start: 20101222, end: 20101224
  3. BAYER AM EXTRA STRENGTH [Suspect]
     Indication: HEADACHE
     Dosage: DAILY DOSE 2 DF
     Route: 048
     Dates: start: 20101227

REACTIONS (4)
  - BLOOD URINE [None]
  - MICTURITION URGENCY [None]
  - DYSURIA [None]
  - ANAL HAEMORRHAGE [None]
